FAERS Safety Report 5047348-8 (Version None)
Quarter: 2006Q3

REPORT INFORMATION
  Report Type: 
  Country: None (occurrence: None)
  Receive Date: 20060703
  Receipt Date: 20060621
  Transmission Date: 20061208
  Serious: Yes (Hospitalization)
  Sender: FDA-Public Use
  Company Number: GXKR2006AR03529

PATIENT
  Age: 66 Year
  Sex: Female

DRUGS (5)
  1. TRIFLUOPERAZINE HCL [Suspect]
     Dosage: 20 MG
  2. LORAZEPAM [Suspect]
     Dosage: 10 MG
  3. FLUOXETINE [Suspect]
     Dosage: 60 MG
  4. TRANYLCYPROMINE SULFATE [Suspect]
     Dosage: 100 MG
  5. REMIFENTANIL(REMIFENTANIL) [Suspect]
     Dosage: 5.7 A, AUG, X KG, X H, INFUSION

REACTIONS (7)
  - BINOCULAR EYE MOVEMENT DISORDER [None]
  - COMA [None]
  - CONDITION AGGRAVATED [None]
  - DRUG INTERACTION [None]
  - INTENTIONAL OVERDOSE [None]
  - SEROTONIN SYNDROME [None]
  - TRISMUS [None]
